FAERS Safety Report 5776556-3 (Version None)
Quarter: 2008Q2

REPORT INFORMATION
  Report Type: 
  Country: None (occurrence: None)
  Receive Date: 20080616
  Receipt Date: 20080604
  Transmission Date: 20081010
  Serious: Yes (Hospitalization)
  Sender: FDA-Public Use
  Company Number: 2008AL006371

PATIENT
  Age: 61 Year
  Sex: Female
  Weight: 68.0396 kg

DRUGS (8)
  1. DIGOXIN [Suspect]
     Indication: CARDIAC FAILURE CONGESTIVE
     Dosage: 0.25MG DAILY PO
     Route: 048
     Dates: start: 20060101, end: 20080609
  2. LASIX [Concomitant]
  3. FLUCONAZOLE [Concomitant]
  4. POTASSIUM CHLORIDE [Concomitant]
  5. METOLAZONE [Concomitant]
  6. COREG [Concomitant]
  7. METOPROLOL [Concomitant]
  8. AVAPRO [Concomitant]

REACTIONS (6)
  - CHEST PAIN [None]
  - CONFUSIONAL STATE [None]
  - NAUSEA [None]
  - THERAPEUTIC AGENT TOXICITY [None]
  - VISION BLURRED [None]
  - VOMITING [None]
